FAERS Safety Report 6743990-4 (Version None)
Quarter: 2010Q2

REPORT INFORMATION
  Report Type: 
  Country: None (occurrence: None)
  Receive Date: 20100527
  Receipt Date: 20100517
  Transmission Date: 20101027
  Serious: Yes (Hospitalization, Other)
  Sender: FDA-Public Use
  Company Number: FR-BAXTER-2009BH006045

PATIENT
  Age: 24 Year
  Sex: Male
  Weight: 65 kg

DRUGS (9)
  1. EXTRANEAL [Suspect]
     Indication: PERITONEAL DIALYSIS
     Route: 033
     Dates: start: 20040101, end: 20070301
  2. PHYSIOSOL IN PLASTIC CONTAINER [Suspect]
     Indication: PERITONEAL DIALYSIS
     Route: 033
     Dates: start: 20040101, end: 20070301
  3. TENORMIN [Concomitant]
     Indication: HYPERTENSION
     Route: 065
  4. HYPERIUM [Concomitant]
     Indication: HYPERTENSION
  5. CANDESARTAN [Concomitant]
     Indication: HYPERTENSION
     Route: 065
  6. AMLOR [Concomitant]
     Indication: HYPERTENSION
     Route: 065
  7. URAPIDIL [Concomitant]
     Indication: HYPERTENSION
  8. CINACALCET [Concomitant]
     Indication: HYPERPARATHYROIDISM
     Route: 065
  9. RENAGEL [Concomitant]
     Indication: HYPERPARATHYROIDISM
     Route: 065

REACTIONS (7)
  - ANURIA [None]
  - FLUID OVERLOAD [None]
  - HYPERPHOSPHATAEMIA [None]
  - HYPERTENSION [None]
  - PERITONEAL DIALYSIS COMPLICATION [None]
  - PERITONITIS SCLEROSING [None]
  - RECTAL TENESMUS [None]
